FAERS Safety Report 15992450 (Version 2)
Quarter: 2019Q1

REPORT INFORMATION
  Report Type: Spontaneous
  Country: US (occurrence: US)
  Receive Date: 20190221
  Receipt Date: 20190311
  Transmission Date: 20190418
  Serious: No
  Sender: FDA-Public Use
  Company Number: US-ALLERGAN-1846683US

PATIENT
  Age: 86 Year
  Sex: Female
  Weight: 56.69 kg

DRUGS (4)
  1. PRAVASET [Concomitant]
     Indication: CARDIAC DISORDER
  2. OXYTROL [Suspect]
     Active Substance: OXYBUTYNIN
     Indication: HYPERTONIC BLADDER
     Dosage: 3.9 MG, UNKNOWN
     Route: 062
     Dates: start: 20180924
  3. SYNTHROID [Concomitant]
     Active Substance: LEVOTHYROXINE SODIUM
     Indication: HYPOTHYROIDISM
  4. FAMOTIDINE. [Concomitant]
     Active Substance: FAMOTIDINE
     Indication: HIATUS HERNIA
     Dosage: UNK

REACTIONS (3)
  - Drug ineffective [Unknown]
  - Urinary incontinence [Unknown]
  - Prescription drug used without a prescription [Unknown]

NARRATIVE: CASE EVENT DATE: 20180927
